FAERS Safety Report 16513725 (Version 2)
Quarter: 2019Q4

REPORT INFORMATION
  Report Type: Spontaneous
  Country: NL (occurrence: DE)
  Receive Date: 20190702
  Receipt Date: 20191011
  Transmission Date: 20200122
  Serious: Yes (Other)
  Sender: FDA-Public Use
  Company Number: DE-FRESENIUS KABI-FK201907148

PATIENT
  Age: 33 Year
  Sex: Male
  Weight: 47 kg

DRUGS (9)
  1. CIPROFLOXACIN (MANUFACTURER UNKNOWN) [Interacting]
     Active Substance: CIPROFLOXACIN
     Indication: ORCHITIS NONINFECTIVE
     Route: 065
  2. VALPROATE SODIUM. [Interacting]
     Active Substance: VALPROATE SODIUM
     Route: 065
     Dates: start: 2010, end: 2014
  3. VALPROATE SODIUM. [Suspect]
     Active Substance: VALPROATE SODIUM
     Indication: EPILEPSY
     Route: 065
     Dates: start: 2019
  4. SULTIAME [Concomitant]
     Active Substance: SULTHIAME
     Indication: EPILEPSY
     Route: 065
  5. VANCOMYCIN (MANUFACTURER UNKNOWN) [Suspect]
     Active Substance: VANCOMYCIN
     Indication: ORCHITIS NONINFECTIVE
     Route: 065
  6. VALPROATE SODIUM. [Interacting]
     Active Substance: VALPROATE SODIUM
     Indication: EPILEPSY
     Dosage: 300 MG-0-300 MG
     Route: 065
     Dates: start: 2014, end: 201906
  7. VALPROATE SODIUM. [Interacting]
     Active Substance: VALPROATE SODIUM
     Route: 048
     Dates: start: 2001, end: 2010
  8. AMOXICILLIN SODIUM/CLAVULANATE POTASSIUM [Interacting]
     Active Substance: AMOXICILLIN\CLAVULANATE POTASSIUM
     Indication: ORCHITIS NONINFECTIVE
     Route: 065
  9. VALPROATE SODIUM. [Suspect]
     Active Substance: VALPROATE SODIUM
     Route: 065
     Dates: start: 2019

REACTIONS (7)
  - Bone density decreased [Not Recovered/Not Resolved]
  - Seizure [Unknown]
  - Product use in unapproved indication [Unknown]
  - Therapeutic product effect decreased [Unknown]
  - Osteopenia [Not Recovered/Not Resolved]
  - Drug interaction [Unknown]
  - White blood cell count increased [Not Recovered/Not Resolved]
